FAERS Safety Report 20545044 (Version 2)
Quarter: 2023Q2

REPORT INFORMATION
  Report Type: Spontaneous
  Country: US (occurrence: US)
  Receive Date: 20220303
  Receipt Date: 20230419
  Transmission Date: 20230722
  Serious: No
  Sender: FDA-Public Use
  Company Number: US-ALLERGAN-2144412US

PATIENT
  Sex: Female
  Weight: 56.689 kg

DRUGS (4)
  1. RESTASIS [Suspect]
     Active Substance: CYCLOSPORINE
     Indication: Dry eye
     Dosage: UNK UNK, BID
     Route: 047
  2. FLUOROMETHOLONE [Concomitant]
     Active Substance: FLUOROMETHOLONE
     Indication: Dry eye
     Dosage: 2-3 GTT, PRN
  3. GENTEAL TEARS [HYPROMELLOSE] [Concomitant]
     Indication: Dry eye
     Dosage: AT NIGHT, PRN
  4. ZADITOR [Concomitant]
     Active Substance: KETOTIFEN FUMARATE
     Indication: Dry eye
     Dosage: 2 GTT, PRN

REACTIONS (3)
  - Eye disorder [Unknown]
  - Dry eye [Not Recovered/Not Resolved]
  - Drug ineffective [Unknown]
